FAERS Safety Report 19428003 (Version 1)
Quarter: 2021Q2

REPORT INFORMATION
  Report Type: Spontaneous
  Country: US (occurrence: US)
  Receive Date: 20210616
  Receipt Date: 20210616
  Transmission Date: 20210717
  Serious: No
  Sender: FDA-Public Use
  Company Number: None

PATIENT
  Age: 73 Year
  Sex: Male
  Weight: 71.5 kg

DRUGS (3)
  1. CEFAZOLIN [Concomitant]
     Active Substance: CEFAZOLIN
     Dates: start: 20210603, end: 20210603
  2. HEPARIN [Suspect]
     Active Substance: HEPARIN SODIUM
     Indication: INTRAOPERATIVE CARE
     Dosage: OTHER FREQUENCY:ONCE;?
     Route: 040
     Dates: start: 20210603, end: 20210603
  3. MIDAZOLAM. [Concomitant]
     Active Substance: MIDAZOLAM
     Dates: start: 20210603, end: 20210603

REACTIONS (1)
  - Drug ineffective [None]

NARRATIVE: CASE EVENT DATE: 20210603
